FAERS Safety Report 14141245 (Version 1)
Quarter: 2017Q4

REPORT INFORMATION
  Report Type: Spontaneous
  Country: US (occurrence: US)
  Receive Date: 20171030
  Receipt Date: 20171030
  Transmission Date: 20180321
  Serious: Yes (Other)
  Sender: FDA-Public Use
  Company Number: US-PFIZER INC-2017465075

PATIENT
  Age: 44 Year
  Sex: Female
  Weight: 90.72 kg

DRUGS (6)
  1. TOPAMAX [Concomitant]
     Active Substance: TOPIRAMATE
     Indication: HYPERTENSION
     Dosage: 100MG, TAKE ONE IN THE MORNING AND TWO IN THE EVENING
  2. PROMETHAZINE [Concomitant]
     Active Substance: PROMETHAZINE\PROMETHAZINE HYDROCHLORIDE
     Indication: NAUSEA
     Dosage: 25 MG, AS NEEDED
  3. LYRICA [Suspect]
     Active Substance: PREGABALIN
     Indication: PARAESTHESIA
     Dosage: 100 MG, 3X/DAY
     Route: 048
     Dates: start: 2006
  4. ZOLOFT [Concomitant]
     Active Substance: SERTRALINE HYDROCHLORIDE
     Indication: DEPRESSION
     Dosage: 200 MG, 1X/DAY
     Route: 048
  5. PROPANOLOL [Concomitant]
     Active Substance: PROPRANOLOL HYDROCHLORIDE
     Indication: BLOOD PRESSURE ABNORMAL
     Dosage: 80 MG, 3X/DAY
     Route: 048
  6. LEVOTHYROXINE. [Concomitant]
     Active Substance: LEVOTHYROXINE
     Indication: HYPOTHYROIDISM
     Dosage: 50 UG, UNK
     Route: 048

REACTIONS (9)
  - Amnesia [Unknown]
  - Impaired work ability [Unknown]
  - Personality disorder [Unknown]
  - Migraine [Unknown]
  - Intracranial aneurysm [Not Recovered/Not Resolved]
  - Condition aggravated [Unknown]
  - Headache [Unknown]
  - Brain neoplasm [Not Recovered/Not Resolved]
  - Loss of personal independence in daily activities [Unknown]

NARRATIVE: CASE EVENT DATE: 2014
